FAERS Safety Report 19795506 (Version 1)
Quarter: 2021Q3

REPORT INFORMATION
  Report Type: Spontaneous
  Country: US (occurrence: US)
  Receive Date: 20210903
  Receipt Date: 20210903
  Transmission Date: 20211014
  Serious: No
  Sender: FDA-Public Use
  Company Number: None

PATIENT
  Age: 74 Year
  Sex: Male
  Weight: 85 kg

DRUGS (6)
  1. METOPROLOL TARTRATE 100MG [Concomitant]
     Active Substance: METOPROLOL TARTRATE
  2. ERIVEDGE [Suspect]
     Active Substance: VISMODEGIB
     Indication: SKIN CANCER
     Route: 048
     Dates: start: 20210612
  3. AMLODIPINE [Concomitant]
     Active Substance: AMLODIPINE BESYLATE
  4. LISINOPRIL 10MG [Concomitant]
     Active Substance: LISINOPRIL
  5. WARFARIN 5MG [Concomitant]
     Active Substance: WARFARIN
  6. ATORVASTATIN 10MG [Concomitant]
     Active Substance: ATORVASTATIN

REACTIONS (1)
  - Muscle spasms [None]

NARRATIVE: CASE EVENT DATE: 20210902
